FAERS Safety Report 22275945 (Version 1)
Quarter: 2023Q2

REPORT INFORMATION
  Report Type: Spontaneous
  Country: US (occurrence: None)
  Receive Date: 20230501
  Receipt Date: 20230501
  Transmission Date: 20230722
  Serious: No
  Sender: FDA-Public Use
  Company Number: None

PATIENT
  Age: 40 Year
  Sex: Female
  Weight: 60.3 kg

DRUGS (1)
  1. HIBICLENS [Suspect]
     Active Substance: CHLORHEXIDINE GLUCONATE
     Indication: Hysterosalpingogram
     Dosage: OTHER FREQUENCY : ONE TIME;?
     Route: 067
     Dates: start: 20230426, end: 20230426

REACTIONS (4)
  - Vulvovaginal pruritus [None]
  - Vulvovaginal burning sensation [None]
  - Vulvovaginal swelling [None]
  - Drug hypersensitivity [None]

NARRATIVE: CASE EVENT DATE: 20230426
